FAERS Safety Report 16712321 (Version 1)
Quarter: 2019Q3

REPORT INFORMATION
  Report Type: Spontaneous
  Country: US (occurrence: US)
  Receive Date: 20190816
  Receipt Date: 20190816
  Transmission Date: 20191004
  Serious: Yes (Hospitalization)
  Sender: FDA-Public Use
  Company Number: US-BAUSCH-BL-2019-023432

PATIENT
  Age: 81 Year
  Sex: Female

DRUGS (27)
  1. TOCOPHEROL [Concomitant]
     Active Substance: TOCOPHEROL
     Indication: PRODUCT USED FOR UNKNOWN INDICATION
  2. FEBUXOSTAT. [Concomitant]
     Active Substance: FEBUXOSTAT
     Indication: PRODUCT USED FOR UNKNOWN INDICATION
  3. WELCHOL [Suspect]
     Active Substance: COLESEVELAM HYDROCHLORIDE
     Indication: IRRITABLE BOWEL SYNDROME
     Dosage: STARTED TEN YEARS AGO
     Route: 048
     Dates: start: 2009
  4. PROTONIX [Concomitant]
     Active Substance: PANTOPRAZOLE SODIUM
     Indication: PRODUCT USED FOR UNKNOWN INDICATION
  5. LISINOPRIL. [Concomitant]
     Active Substance: LISINOPRIL
     Indication: PRODUCT USED FOR UNKNOWN INDICATION
  6. CALCIUM GLUCONATE. [Concomitant]
     Active Substance: CALCIUM GLUCONATE
     Indication: PRODUCT USED FOR UNKNOWN INDICATION
  7. THIAMINE HYDROCHLORIDE. [Concomitant]
     Active Substance: THIAMINE HYDROCHLORIDE
     Indication: PRODUCT USED FOR UNKNOWN INDICATION
  8. AMLODIPINE [Concomitant]
     Active Substance: AMLODIPINE BESYLATE
     Indication: PRODUCT USED FOR UNKNOWN INDICATION
  9. VITAMIN 15 [Concomitant]
     Indication: PRODUCT USED FOR UNKNOWN INDICATION
  10. ERGOCALCIFEROL. [Concomitant]
     Active Substance: ERGOCALCIFEROL
     Indication: PRODUCT USED FOR UNKNOWN INDICATION
  11. FERROUS FUMARATE [Concomitant]
     Active Substance: FERROUS FUMARATE
     Indication: PRODUCT USED FOR UNKNOWN INDICATION
  12. FOLIC ACID. [Concomitant]
     Active Substance: FOLIC ACID
     Indication: PRODUCT USED FOR UNKNOWN INDICATION
  13. MAGNESIUM PHOSPHATE [Concomitant]
     Active Substance: MAGNESIUM PHOSPHATE, TRIBASIC, PENTAHYDRATE
     Indication: PRODUCT USED FOR UNKNOWN INDICATION
  14. RETINOL [Concomitant]
     Active Substance: RETINOL
     Indication: PRODUCT USED FOR UNKNOWN INDICATION
  15. METFORMIN [Suspect]
     Active Substance: METFORMIN HYDROCHLORIDE
     Indication: TYPE 2 DIABETES MELLITUS
     Route: 048
     Dates: start: 2009
  16. ASCORBIC ACID. [Concomitant]
     Active Substance: ASCORBIC ACID
     Indication: PRODUCT USED FOR UNKNOWN INDICATION
  17. CALCIUM PANTOTHENATE [Concomitant]
     Active Substance: CALCIUM PANTOTHENATE
     Indication: PRODUCT USED FOR UNKNOWN INDICATION
  18. RIBOFLAVIN [Concomitant]
     Active Substance: RIBOFLAVIN
     Indication: PRODUCT USED FOR UNKNOWN INDICATION
  19. METFORMIN [Suspect]
     Active Substance: METFORMIN HYDROCHLORIDE
     Route: 048
  20. STATIN [Suspect]
     Active Substance: UNSPECIFIED INGREDIENT
     Indication: HYPERLIPIDAEMIA
     Dosage: STOPPED IT 2-3 WEEKS LATER
     Route: 065
  21. METOPROLOL. [Concomitant]
     Active Substance: METOPROLOL
     Indication: PRODUCT USED FOR UNKNOWN INDICATION
  22. ULORIC [Concomitant]
     Active Substance: FEBUXOSTAT
     Indication: PRODUCT USED FOR UNKNOWN INDICATION
  23. CYANOCOBALAMIN. [Concomitant]
     Active Substance: CYANOCOBALAMIN
     Indication: PRODUCT USED FOR UNKNOWN INDICATION
  24. PYRIDOXINE HYDROCHLORIDE. [Concomitant]
     Active Substance: PYRIDOXINE HYDROCHLORIDE
     Indication: PRODUCT USED FOR UNKNOWN INDICATION
  25. WELCHOL [Suspect]
     Active Substance: COLESEVELAM HYDROCHLORIDE
     Indication: OFF LABEL USE
  26. MONTELUKAST [Concomitant]
     Active Substance: MONTELUKAST SODIUM
     Indication: PRODUCT USED FOR UNKNOWN INDICATION
  27. NICOTINAMIDE [Concomitant]
     Active Substance: NIACINAMIDE
     Indication: PRODUCT USED FOR UNKNOWN INDICATION

REACTIONS (14)
  - Blood glucose increased [Not Recovered/Not Resolved]
  - Asthenia [Recovered/Resolved]
  - Pyrexia [Recovered/Resolved]
  - Urinary tract infection [Recovered/Resolved]
  - Dysphonia [Not Recovered/Not Resolved]
  - Off label use [Not Recovered/Not Resolved]
  - Malaise [Recovered/Resolved]
  - Cystitis [Recovered/Resolved]
  - Loss of consciousness [Recovered/Resolved]
  - Diarrhoea [Not Recovered/Not Resolved]
  - Chills [Recovered/Resolved]
  - Cough [Unknown]
  - Oesophageal disorder [Unknown]
  - Vocal cord disorder [Not Recovered/Not Resolved]

NARRATIVE: CASE EVENT DATE: 2017
